FAERS Safety Report 9936991 (Version 1)
Quarter: 2014Q1

REPORT INFORMATION
  Report Type: Spontaneous
  Country: US (occurrence: None)
  Receive Date: 20140115
  Receipt Date: 20140115
  Transmission Date: 20141002
  Serious: No
  Sender: FDA-Public Use
  Company Number: 2013US002533

PATIENT
  Age: 82 Year
  Sex: Male
  Weight: 73 kg

DRUGS (9)
  1. ICLUSIG (PONATINIB) TABLET, 15MG [Suspect]
     Indication: CHRONIC MYELOID LEUKAEMIA
     Route: 048
     Dates: start: 20130726
  2. METOPROLOL (METOPROLOL) [Concomitant]
  3. MAGNESIUM CITRATE (MAGNESIUM CITRATE) [Concomitant]
  4. STOOL SOFTENER (DOCUSATE SODIUM) [Concomitant]
  5. ONDANSETRON (ONDANSETRON) [Concomitant]
  6. FENTANYL (FENTANYL) [Concomitant]
  7. GABAPENTIN (GABAPENTIN) [Concomitant]
  8. AMLODIPINE (AMLODIPINE) [Concomitant]
  9. GLIPIZIDE (GLIPIZIDE) [Concomitant]

REACTIONS (4)
  - Impaired healing [None]
  - Wound [None]
  - Neuropathy peripheral [None]
  - Asthenia [None]
